FAERS Safety Report 18664294 (Version 1)
Quarter: 2020Q4

REPORT INFORMATION
  Report Type: Spontaneous
  Country: DE (occurrence: DE)
  Receive Date: 20201225
  Receipt Date: 20201225
  Transmission Date: 20210114
  Serious: Yes (Hospitalization)
  Sender: FDA-Public Use
  Company Number: DE-TEVA-2020-DE-1860904

PATIENT
  Age: 74 Year
  Sex: Female

DRUGS (3)
  1. CITALOPRAM [Concomitant]
     Active Substance: CITALOPRAM HYDROBROMIDE
     Dosage: 10 MILLIGRAM DAILY; 1-0-0-0
  2. COLECALCIFEROL  (VITAMIN D) [Concomitant]
     Dosage: 4000 IU / WEEK, 1X
  3. PREDNISOLON [Suspect]
     Active Substance: PREDNISOLONE
     Dosage: 20 MILLIGRAM DAILY;  1-0-0-0

REACTIONS (6)
  - Asthenia [Unknown]
  - Pollakiuria [Unknown]
  - Chills [Unknown]
  - Thirst [Unknown]
  - Hyperglycaemia [Unknown]
  - Product prescribing error [Unknown]

NARRATIVE: CASE EVENT DATE: 20200916
